FAERS Safety Report 9995451 (Version 1)
Quarter: 2014Q1

REPORT INFORMATION
  Report Type: Spontaneous
  Country: JP (occurrence: JP)
  Receive Date: 20140311
  Receipt Date: 20140311
  Transmission Date: 20141002
  Serious: Yes (Other)
  Sender: FDA-Public Use
  Company Number: JP-SA-2014SA029173

PATIENT
  Sex: 0

DRUGS (1)
  1. ALLEGRA [Suspect]
     Dosage: 30 MG IN MORNING AND 60 MG AT NIGHT
     Route: 048

REACTIONS (2)
  - Somnolence [Unknown]
  - Tremor [Unknown]
